FAERS Safety Report 26005895 (Version 2)
Quarter: 2025Q4

REPORT INFORMATION
  Report Type: Spontaneous
  Country: EU (occurrence: EU)
  Receive Date: 20251106
  Receipt Date: 20251230
  Transmission Date: 20260117
  Serious: Yes (Other)
  Sender: DAIICHI
  Company Number: EU-DSJP-DS-2025-173436-RO

PATIENT
  Age: 77 Year
  Sex: Female

DRUGS (2)
  1. TRASTUZUMAB DERUXTECAN [Suspect]
     Active Substance: TRASTUZUMAB DERUXTECAN
     Indication: Invasive ductal breast carcinoma
     Dosage: UNK
     Route: 065
  2. TRASTUZUMAB DERUXTECAN [Suspect]
     Active Substance: TRASTUZUMAB DERUXTECAN
     Indication: Metastatic neoplasm

REACTIONS (5)
  - Portal vein thrombosis [Recovered/Resolved]
  - Portal hypertension [Unknown]
  - Pneumonitis [Unknown]
  - Nausea [Unknown]
  - Fatigue [Unknown]
